FAERS Safety Report 16636099 (Version 3)
Quarter: 2019Q3

REPORT INFORMATION
  Report Type: Spontaneous
  Country: US (occurrence: US)
  Receive Date: 20190726
  Receipt Date: 20190819
  Transmission Date: 20191004
  Serious: No
  Sender: FDA-Public Use
  Company Number: US-PFIZER INC-2019318370

PATIENT
  Age: 22 Year
  Sex: Female
  Weight: 54.43 kg

DRUGS (2)
  1. PROPYLENE GLYCOL [Suspect]
     Active Substance: PROPYLENE GLYCOL
     Dosage: UNK
  2. EUCRISA [Suspect]
     Active Substance: CRISABOROLE
     Indication: ECZEMA EYELIDS
     Dosage: UNK
     Dates: start: 20190315

REACTIONS (1)
  - Reaction to excipient [Unknown]
